FAERS Safety Report 9621046 (Version 5)
Quarter: 2016Q1

REPORT INFORMATION
  Report Type: Spontaneous
  Country: JP (occurrence: JP)
  Receive Date: 20131015
  Receipt Date: 20160324
  Transmission Date: 20160526
  Serious: Yes (Other)
  Sender: FDA-Public Use
  Company Number: PHHY2013JP114673

PATIENT
  Age: 57 Year
  Sex: Male

DRUGS (7)
  1. IMATINIB [Suspect]
     Active Substance: IMATINIB
     Dosage: 800 MG, QD
     Route: 048
  2. VOGLIBOSE [Concomitant]
     Active Substance: VOGLIBOSE
     Indication: PRODUCT USED FOR UNKNOWN INDICATION
     Route: 065
  3. ETIZOLAM [Concomitant]
     Active Substance: ETIZOLAM
     Indication: PRODUCT USED FOR UNKNOWN INDICATION
     Route: 065
  4. IMATINIB [Suspect]
     Active Substance: IMATINIB
     Indication: CHRONIC MYELOID LEUKAEMIA
     Dosage: 200 MG, QD, (100-200 MG)
     Route: 065
     Dates: start: 200112
  5. EPINASTINE [Concomitant]
     Active Substance: EPINASTINE
     Indication: PRODUCT USED FOR UNKNOWN INDICATION
     Route: 065
  6. FUROSEMIDE. [Concomitant]
     Active Substance: FUROSEMIDE
     Indication: PRODUCT USED FOR UNKNOWN INDICATION
     Route: 065
  7. IMATINIB [Suspect]
     Active Substance: IMATINIB
     Dosage: 800 MG, QD
     Route: 048

REACTIONS (7)
  - Anaemia [Unknown]
  - Gastric haemorrhage [Unknown]
  - Gastric antral vascular ectasia [Unknown]
  - Melaena [Unknown]
  - Shock haemorrhagic [Unknown]
  - Haematemesis [Unknown]
  - Blast crisis in myelogenous leukaemia [Unknown]

NARRATIVE: CASE EVENT DATE: 200612
